FAERS Safety Report 11932731 (Version 2)
Quarter: 2016Q1

REPORT INFORMATION
  Report Type: Spontaneous
  Country: CA (occurrence: CA)
  Receive Date: 20160120
  Receipt Date: 20160328
  Transmission Date: 20160526
  Serious: Yes (Other)
  Sender: FDA-Public Use
  Company Number: CA-PFIZER INC-2015305097

PATIENT
  Age: 56 Year
  Sex: Female

DRUGS (6)
  1. METHOTREXATE [Concomitant]
     Active Substance: METHOTREXATE
     Indication: RHEUMATOID ARTHRITIS
     Dosage: 2.5 MG, WEEKLY
     Route: 048
  2. LYRICA [Concomitant]
     Active Substance: PREGABALIN
     Dosage: 300 MG, 1X/DAY
     Route: 048
  3. XELJANZ [Suspect]
     Active Substance: TOFACITINIB CITRATE
     Indication: RHEUMATOID ARTHRITIS
     Dosage: 5 MG, 2X/DAY
     Route: 048
     Dates: start: 20150708, end: 20151223
  4. PREDNISONE. [Concomitant]
     Active Substance: PREDNISONE
     Indication: RHEUMATOID ARTHRITIS
     Dosage: UNK
  5. VIMOVO [Concomitant]
     Active Substance: ESOMEPRAZOLE MAGNESIUM\NAPROXEN
     Indication: RHEUMATOID ARTHRITIS
     Dosage: UNK
  6. DETROL LA [Concomitant]
     Active Substance: TOLTERODINE TARTRATE
     Dosage: 4 MG, DAILY
     Route: 048

REACTIONS (10)
  - Dry mouth [Recovering/Resolving]
  - Blood cholesterol increased [Unknown]
  - Impaired healing [Not Recovered/Not Resolved]
  - Hyperhidrosis [Recovering/Resolving]
  - Malaise [Recovering/Resolving]
  - Lower limb fracture [Unknown]
  - Rash [Not Recovered/Not Resolved]
  - Feeling hot [Recovering/Resolving]
  - Fall [Unknown]
  - Feeling of body temperature change [Recovered/Resolved]

NARRATIVE: CASE EVENT DATE: 2015
